FAERS Safety Report 18964791 (Version 1)
Quarter: 2021Q1

REPORT INFORMATION
  Report Type: Spontaneous
  Country: US (occurrence: US)
  Receive Date: 20210303
  Receipt Date: 20210303
  Transmission Date: 20210420
  Serious: No
  Sender: FDA-Public Use
  Company Number: US-AMNEAL PHARMACEUTICALS-2020-AMRX-00939

PATIENT
  Age: 53 Year
  Sex: Female

DRUGS (1)
  1. RYTARY [Suspect]
     Active Substance: CARBIDOPA\LEVODOPA
     Indication: PARKINSON^S DISEASE
     Dosage: 2 CAPSULES, QID
     Route: 048
     Dates: start: 20200316, end: 20200321

REACTIONS (4)
  - Dystonia [Unknown]
  - Muscle rigidity [Unknown]
  - Dyskinesia [Unknown]
  - Nausea [Unknown]

NARRATIVE: CASE EVENT DATE: 20200316
